FAERS Safety Report 8572488-6 (Version None)
Quarter: 2012Q2

REPORT INFORMATION
  Report Type: 
  Country: None (occurrence: None)
  Receive Date: 20120419
  Receipt Date: 20120419
  Transmission Date: 20120825
  Serious: Yes (Hospitalization)
  Sender: FDA-Public Use
  Company Number: ALL1-2011-02496

PATIENT
  Age: 22 Year
  Sex: Female
  Weight: 94.3 kg

DRUGS (5)
  1. SINGULAIR [Concomitant]
  2. YAZ /06358701/ (DROSPIRENONE, ETHINYLESTRADIOL BETADEX CLATHRATE) [Concomitant]
  3. FLOVENT [Concomitant]
  4. LIALDA [Suspect]
     Indication: COLITIS
     Dosage: 2.4 G, 1X/DAY:QD(TWO 1.2 G TABLETS DAILY), ORAL
     Route: 048
     Dates: start: 20110713, end: 20110719
  5. TYLENOL (CAPLET) [Concomitant]

REACTIONS (1)
  - PANCREATITIS ACUTE [None]
